FAERS Safety Report 4840835-4 (Version None)
Quarter: 2005Q4

REPORT INFORMATION
  Report Type: 
  Country: None (occurrence: None)
  Receive Date: 20051130
  Receipt Date: 20050621
  Transmission Date: 20060501
  Serious: No
  Sender: FDA-Public Use
  Company Number: US-BRISTOL-MYERS SQUIBB COMPANY-13010459

PATIENT
  Age: 50 Year
  Sex: Female
  Weight: 70 kg

DRUGS (7)
  1. AVALIDE [Suspect]
  2. ELAVIL [Concomitant]
  3. CELEBREX [Concomitant]
  4. ACYCLOVIR [Concomitant]
  5. NEXIUM [Concomitant]
  6. CALCIUM GLUCONATE [Concomitant]
  7. MULTI-VITAMIN [Concomitant]

REACTIONS (1)
  - CHROMATURIA [None]
